FAERS Safety Report 5091085-0 (Version None)
Quarter: 2006Q3

REPORT INFORMATION
  Report Type: 
  Country: None (occurrence: None)
  Receive Date: 20060829
  Receipt Date: 20060818
  Transmission Date: 20061208
  Serious: Yes (Hospitalization)
  Sender: FDA-Public Use
  Company Number: US-JNJFOC-20060804734

PATIENT
  Sex: Male
  Weight: 113.4 kg

DRUGS (5)
  1. DURAGESIC-100 [Suspect]
     Indication: PAIN
     Route: 062
  2. HYDROMORPHONE HCL [Concomitant]
     Indication: PAIN
     Route: 048
  3. NORVASC [Concomitant]
     Indication: CARDIAC DISORDER
     Route: 048
  4. SOTALOL HYDROCHLORIDE [Concomitant]
     Indication: CARDIAC DISORDER
     Route: 048
  5. PROTONIX [Concomitant]
     Indication: GASTRIC DISORDER
     Route: 048

REACTIONS (5)
  - ABDOMINAL PAIN UPPER [None]
  - CHEST PAIN [None]
  - HOSPITALISATION [None]
  - NECK PAIN [None]
  - THERAPEUTIC RESPONSE DECREASED [None]
